FAERS Safety Report 7611108-1 (Version None)
Quarter: 2011Q3

REPORT INFORMATION
  Report Type: 
  Country: None (occurrence: None)
  Receive Date: 20110707
  Receipt Date: 20110620
  Transmission Date: 20111222
  Serious: Yes (Hospitalization)
  Sender: FDA-Public Use
  Company Number: ENTC2007-0177

PATIENT
  Age: 62 Year
  Sex: Male

DRUGS (5)
  1. ATORVASTATIN CALCIUM [Concomitant]
  2. LEVODOPA-CARBIDOPA-ENTACAPONE (LEVODOPA, CARBIDOPA, ENTACAPONE) [Suspect]
     Indication: PARKINSON'S DISEASE
     Dosage: ORAL
     Route: 048
     Dates: start: 20061001, end: 20070222
  3. TRIVASTAL [Concomitant]
  4. ZESTORETIC [Concomitant]
  5. SECTRAL [Concomitant]

REACTIONS (3)
  - WEIGHT DECREASED [None]
  - COLITIS [None]
  - CONSTIPATION [None]
